FAERS Safety Report 7153169-2 (Version None)
Quarter: 2010Q4

REPORT INFORMATION
  Report Type: 
  Country: None (occurrence: None)
  Receive Date: 20101209
  Receipt Date: 20101209
  Transmission Date: 20110411
  Serious: Yes (Life-Threatening, Other)
  Sender: FDA-Public Use
  Company Number: None

PATIENT
  Age: 68 Year
  Sex: Female
  Weight: 81.6475 kg

DRUGS (2)
  1. PROCARDIA XL [Suspect]
     Dosage: 60 MG DAILY MOUTH
     Route: 048
     Dates: start: 20101001, end: 20101101
  2. NIFEDIPINE [Suspect]
     Dosage: 60 MG DAILY MOUTH
     Route: 048

REACTIONS (3)
  - ANGINA PECTORIS [None]
  - DYSPNOEA [None]
  - PRODUCT SUBSTITUTION ISSUE [None]
